FAERS Safety Report 18663223 (Version 1)
Quarter: 2020Q4

REPORT INFORMATION
  Report Type: Spontaneous
  Country: DE (occurrence: TW)
  Receive Date: 20201224
  Receipt Date: 20201224
  Transmission Date: 20210114
  Serious: Yes (Hospitalization)
  Sender: FDA-Public Use
  Company Number: TW-ELI_LILLY_AND_COMPANY-TW202012011898

PATIENT
  Age: 78 Year
  Sex: Female
  Weight: 61 kg

DRUGS (6)
  1. ERBITUX [Suspect]
     Active Substance: CETUXIMAB
     Indication: COLORECTAL CANCER METASTATIC
     Dosage: 800 MG, UNK
     Route: 041
     Dates: start: 20180720
  2. 5 FU [Concomitant]
     Active Substance: FLUOROURACIL
     Indication: COLORECTAL CANCER METASTATIC
     Dosage: 790 MG, UNK
     Dates: start: 20180126, end: 20180511
  3. CAMPTO [Concomitant]
     Active Substance: IRINOTECAN
     Dosage: 206.7 MG, UNK
     Route: 041
     Dates: start: 20180810
  4. ERBITUX [Suspect]
     Active Substance: CETUXIMAB
     Dosage: UNK, UNKNOWN
     Route: 041
     Dates: start: 20181221
  5. CAMPTO [Concomitant]
     Active Substance: IRINOTECAN
     Indication: COLORECTAL CANCER METASTATIC
     Dosage: 222.6 MG, UNK
     Route: 042
     Dates: start: 20180720
  6. 5 FU [Concomitant]
     Active Substance: FLUOROURACIL
     Dosage: 1749 MG, UNK
     Dates: start: 20180720

REACTIONS (9)
  - Thrombocytopenia [Unknown]
  - Alopecia [Unknown]
  - Neutropenia [Unknown]
  - Leukopenia [Unknown]
  - Decreased appetite [Unknown]
  - Diarrhoea [Unknown]
  - Anaemia [Unknown]
  - Rash [Unknown]
  - Fatigue [Unknown]

NARRATIVE: CASE EVENT DATE: 2018
